FAERS Safety Report 14494516 (Version 1)
Quarter: 2018Q1

REPORT INFORMATION
  Report Type: Spontaneous
  Country: US (occurrence: US)
  Receive Date: 20180206
  Receipt Date: 20180206
  Transmission Date: 20180509
  Serious: No
  Sender: FDA-Public Use
  Company Number: US-AMGEN-USASP2017074870

PATIENT
  Age: 62 Year
  Sex: Female

DRUGS (6)
  1. DEXAMETHASONE. [Concomitant]
     Active Substance: DEXAMETHASONE
     Dosage: 4 DF (4 TABLETS: A DOSE IN THE MORNING AND A DOSE AT NIGHT ON SUNDAY AND MONDAY)
  2. DEXAMETHASONE. [Concomitant]
     Active Substance: DEXAMETHASONE
     Dosage: 2 DF (2 TABLETS ON SATURDAY)
  3. NEULASTA [Suspect]
     Active Substance: PEGFILGRASTIM
     Indication: PRODUCT USED FOR UNKNOWN INDICATION
     Dosage: UNK
     Route: 065
     Dates: start: 20170429
  4. OLANZAPINE. [Concomitant]
     Active Substance: OLANZAPINE
     Dosage: ON SATURDAY DAY NIGHT, BUT DID NOT TAKE ON MONDAY
  5. SYNTHROID [Concomitant]
     Active Substance: LEVOTHYROXINE SODIUM
     Dosage: 0.75 MG, ON A REGULAR BASIS IN THE MORNINGS
  6. ZOCOR [Concomitant]
     Active Substance: SIMVASTATIN
     Dosage: 10 MG, IN THE EVENINGS

REACTIONS (6)
  - Myalgia [Recovered/Resolved]
  - Flushing [Recovering/Resolving]
  - Musculoskeletal pain [Recovered/Resolved]
  - Arthralgia [Recovered/Resolved]
  - Rash [Not Recovered/Not Resolved]
  - Vertigo positional [Recovering/Resolving]

NARRATIVE: CASE EVENT DATE: 2017
